FAERS Safety Report 12579450 (Version 1)
Quarter: 2016Q3

REPORT INFORMATION
  Report Type: Spontaneous
  Country: US (occurrence: US)
  Receive Date: 20160721
  Receipt Date: 20160721
  Transmission Date: 20161109
  Serious: No
  Sender: FDA-Public Use
  Company Number: US-ELI_LILLY_AND_COMPANY-US201607004375

PATIENT
  Age: 9 Year

DRUGS (2)
  1. STRATTERA [Suspect]
     Active Substance: ATOMOXETINE HYDROCHLORIDE
     Dosage: 10 MG, UNKNOWN
     Route: 065
  2. STRATTERA [Suspect]
     Active Substance: ATOMOXETINE HYDROCHLORIDE
     Indication: PRODUCT USED FOR UNKNOWN INDICATION
     Dosage: 100 MG, UNKNOWN
     Route: 065

REACTIONS (2)
  - Agitation [Recovered/Resolved]
  - Wrong drug administered [Recovered/Resolved]
